FAERS Safety Report 16165682 (Version 1)
Quarter: 2019Q2

REPORT INFORMATION
  Report Type: Spontaneous
  Country: GB (occurrence: GB)
  Receive Date: 20190405
  Receipt Date: 20190405
  Transmission Date: 20190711
  Serious: Yes (Death, Other)
  Sender: FDA-Public Use
  Company Number: PHHY2019GB077034

PATIENT
  Age: 65 Year
  Sex: Female

DRUGS (1)
  1. AMLODIPINE [Suspect]
     Active Substance: AMLODIPINE BESYLATE
     Indication: HERPES ZOSTER
     Dosage: UNK
     Route: 065

REACTIONS (9)
  - Confusional state [Unknown]
  - Product dispensing error [Unknown]
  - Product use in unapproved indication [Unknown]
  - Death [Fatal]
  - Hypotension [Unknown]
  - Wrong product administered [Unknown]
  - Coma [Unknown]
  - Dyspnoea [Unknown]
  - Product label issue [Unknown]
